FAERS Safety Report 9404438 (Version 1)
Quarter: 2013Q3

REPORT INFORMATION
  Report Type: Spontaneous
  Country: US (occurrence: US)
  Receive Date: 20130717
  Receipt Date: 20130717
  Transmission Date: 20140515
  Serious: No
  Sender: FDA-Public Use
  Company Number: US-PFIZER INC-2013206552

PATIENT
  Age: 49 Year
  Sex: Male
  Weight: 150 kg

DRUGS (3)
  1. LYRICA [Suspect]
     Indication: SPINE MALFORMATION
     Dosage: 300 MG, 2X/DAY
     Dates: start: 2012
  2. LYRICA [Suspect]
     Indication: ARTHRALGIA
  3. LYRICA [Suspect]
     Indication: ARTHRITIS

REACTIONS (5)
  - Poor quality drug administered [Unknown]
  - Diarrhoea [Unknown]
  - Injury [Unknown]
  - Malaise [Unknown]
  - Product quality issue [Unknown]
